FAERS Safety Report 6748180-7 (Version None)
Quarter: 2010Q2

REPORT INFORMATION
  Report Type: 
  Country: None (occurrence: None)
  Receive Date: 20100531
  Receipt Date: 20100520
  Transmission Date: 20101027
  Serious: Yes (Other)
  Sender: FDA-Public Use
  Company Number: PHHY2010CN10750

PATIENT
  Sex: Female

DRUGS (2)
  1. TRILEPTAL [Suspect]
     Indication: TEMPORAL LOBE EPILEPSY
     Dosage: 0.6 G, BID
  2. LEVETIRACETAM [Concomitant]
     Dosage: UNK,UNK

REACTIONS (1)
  - OLIGOMENORRHOEA [None]
